FAERS Safety Report 8537366-7 (Version None)
Quarter: 2012Q3

REPORT INFORMATION
  Report Type: 
  Country: None (occurrence: None)
  Receive Date: 20120725
  Receipt Date: 20120717
  Transmission Date: 20120928
  Serious: Yes (Hospitalization, Other)
  Sender: FDA-Public Use
  Company Number: FR-JNJFOC-20120310981

PATIENT
  Sex: Male

DRUGS (17)
  1. OMEPRAZOLE [Concomitant]
     Route: 042
  2. RIVAROXABAN [Suspect]
     Indication: PRODUCT USED FOR UNKNOWN INDICATION
     Route: 048
     Dates: start: 20120301
  3. LEVOTHYROXINE SODIUM [Concomitant]
     Dates: start: 20120302
  4. KETOPROFEN [Concomitant]
     Dates: start: 20120302, end: 20120304
  5. ACETAMINOPHEN W/ CODEINE [Concomitant]
     Dates: start: 20120302
  6. CALCIUM W/COLECALCIFEROL [Concomitant]
     Dates: start: 20120302
  7. ACETAMINOPHEN [Concomitant]
     Route: 042
     Dates: start: 20120301
  8. KEFANDOL [Concomitant]
     Route: 042
     Dates: start: 20120301
  9. ACETAMINOPHEN [Concomitant]
     Dates: start: 20120302
  10. ALBUTEROL SULATE [Concomitant]
  11. KETOPROFEN [Concomitant]
     Dates: start: 20120301
  12. NEXIUM [Concomitant]
     Dates: start: 20120301, end: 20120304
  13. POLYETHYLENE GLYCOL [Concomitant]
     Dates: start: 20120303, end: 20120305
  14. PROPRANOLOL [Concomitant]
  15. FLUTICASONE PROPIONATE/SALMETEROL [Concomitant]
  16. MORPHINE SULFATE [Concomitant]
  17. DEBRIDAT [Concomitant]
     Dates: start: 20120302

REACTIONS (1)
  - RENAL FAILURE ACUTE [None]
